FAERS Safety Report 9703833 (Version 1)
Quarter: 2013Q4

REPORT INFORMATION
  Report Type: Spontaneous
  Country: US (occurrence: None)
  Receive Date: 20131121
  Receipt Date: 20131121
  Transmission Date: 20140711
  Serious: No
  Sender: FDA-Public Use
  Company Number: None

PATIENT
  Age: 46 Year
  Sex: Female

DRUGS (1)
  1. Z PAK MERRICK [Suspect]
     Indication: BRONCHITIS
     Dosage: ONE TABLET  ONCE DAILY
     Dates: start: 20131111, end: 20131116

REACTIONS (2)
  - Oral candidiasis [None]
  - Drug ineffective [None]
